FAERS Safety Report 8134197-7 (Version None)
Quarter: 2012Q1

REPORT INFORMATION
  Report Type: 
  Country: None (occurrence: None)
  Receive Date: 20120130
  Receipt Date: 20120123
  Transmission Date: 20120608
  Serious: Yes (Other)
  Sender: FDA-Public Use
  Company Number: 2012030865

PATIENT
  Age: 64 Year
  Sex: Male

DRUGS (2)
  1. CARIMUNE [Suspect]
     Indication: XANTHOGRANULOMA
     Dosage: INTRAVENOUS (NOT OTHERWISE SPECIFIED) )
     Route: 042
  2. CARIMUNE [Suspect]
     Indication: NEUROPATHY PERIPHERAL
     Dosage: INTRAVENOUS (NOT OTHERWISE SPECIFIED) )
     Route: 042

REACTIONS (2)
  - OFF LABEL USE [None]
  - HAEMOLYTIC ANAEMIA [None]
